FAERS Safety Report 20487610 (Version 1)
Quarter: 2022Q1

REPORT INFORMATION
  Report Type: Spontaneous
  Country: US (occurrence: US)
  Receive Date: 20220218
  Receipt Date: 20220218
  Transmission Date: 20220424
  Serious: No
  Sender: FDA-Public Use
  Company Number: US-CELGENE-USA-20220204312

PATIENT
  Sex: Male

DRUGS (2)
  1. REBLOZYL [Suspect]
     Active Substance: LUSPATERCEPT-AAMT
     Indication: Product used for unknown indication
     Dosage: 110 MILLIGRAM
     Route: 041
  2. REBLOZYL [Suspect]
     Active Substance: LUSPATERCEPT-AAMT
     Dosage: 190 MILLIGRAM
     Route: 041

REACTIONS (1)
  - Weight increased [Unknown]
